FAERS Safety Report 5970429-9 (Version None)
Quarter: 2008Q4

REPORT INFORMATION
  Report Type: 
  Country: None (occurrence: None)
  Receive Date: 20081126
  Receipt Date: 20081120
  Transmission Date: 20090506
  Serious: Yes (Hospitalization)
  Sender: FDA-Public Use
  Company Number: JP-ABBOTT-08P-087-0488969-00

PATIENT
  Sex: Female

DRUGS (9)
  1. CLARITHROMYCIN [Suspect]
     Indication: PHARYNGITIS
     Route: 048
     Dates: start: 20081111, end: 20081116
  2. PL GRAN. [Concomitant]
     Indication: DRUG USE FOR UNKNOWN INDICATION
     Route: 048
     Dates: start: 20081111, end: 20081116
  3. LYSOZYME [Concomitant]
     Indication: DRUG USE FOR UNKNOWN INDICATION
     Route: 048
     Dates: start: 20081111, end: 20081116
  4. DEXTROMETHORPHAN HYDROBROMIDE [Concomitant]
     Indication: DRUG USE FOR UNKNOWN INDICATION
     Route: 048
     Dates: start: 20081111, end: 20081116
  5. CANDESARTAN CILEXETIL [Concomitant]
     Indication: HYPERTENSION
     Route: 048
  6. BISOPROLOL FUMARATE [Concomitant]
     Indication: HYPERTENSION
     Route: 048
  7. LANSOPRAZOLE [Concomitant]
     Indication: REFLUX OESOPHAGITIS
     Route: 048
  8. NORVASC OD [Concomitant]
     Indication: HYPERTENSION
     Route: 048
  9. TRICHLORMETHIAZIDE [Concomitant]
     Indication: HYPERTENSION
     Route: 048
     Dates: start: 20080707

REACTIONS (4)
  - DYSPNOEA [None]
  - FATIGUE [None]
  - INFECTION [None]
  - TONGUE DISCOLOURATION [None]
